FAERS Safety Report 7455624 (Version 2)
Quarter: 2012Q4

REPORT INFORMATION
  Report Type: 
  Country: US (occurrence: US)
  Receive Date: 20100707
  Receipt Date: 20120904
  Transmission Date: 20130627
  Serious: Yes (Other)
  Sender: FDA-Public Use
  Company Number: US-JNJFOC-20100201875

PATIENT
  Sex: Female

DRUGS (4)
  1. LEVAQUIN [Suspect]
     Indication: PLEURAL EFFUSION
     Route: 048
  2. LEVAQUIN [Suspect]
     Indication: PNEUMONIA
     Route: 048
  3. LEVAQUIN [Suspect]
     Indication: PLEURAL EFFUSION
     Route: 042
  4. LEVAQUIN [Suspect]
     Indication: PNEUMONIA
     Route: 042

REACTIONS (3)
  - Rotator cuff syndrome [Recovering/Resolving]
  - Joint injury [Unknown]
  - Synovitis [Unknown]
